FAERS Safety Report 26206694 (Version 1)
Quarter: 2025Q4

REPORT INFORMATION
  Report Type: Spontaneous
  Country: CN (occurrence: CN)
  Receive Date: 20251229
  Receipt Date: 20251229
  Transmission Date: 20260118
  Serious: Yes (Other)
  Sender: BAXTER
  Company Number: None

PATIENT
  Age: 61 Year
  Sex: Female
  Weight: 60 kg

DRUGS (4)
  1. CYCLOPHOSPHAMIDE [Suspect]
     Active Substance: CYCLOPHOSPHAMIDE
     Indication: Breast cancer female
     Dosage: 0.9 G, QD
     Route: 041
     Dates: start: 20251216, end: 20251216
  2. SODIUM CHLORIDE [Suspect]
     Active Substance: SODIUM CHLORIDE
     Indication: Medication dilution
     Dosage: 50 ML
     Route: 041
     Dates: start: 20251216, end: 20251216
  3. ANHYDROUS DEXTROSE [Suspect]
     Active Substance: ANHYDROUS DEXTROSE
     Indication: Medication dilution
     Dosage: 750 ML
     Route: 041
     Dates: start: 20251216, end: 20251216
  4. DOXORUBICIN HYDROCHLORIDE [Suspect]
     Active Substance: DOXORUBICIN HYDROCHLORIDE
     Indication: Breast cancer female
     Dosage: 50 MG, QD
     Route: 041
     Dates: start: 20251216, end: 20251216

REACTIONS (2)
  - Vomiting [Recovered/Resolved]
  - Nausea [Recovering/Resolving]

NARRATIVE: CASE EVENT DATE: 20251216
